FAERS Safety Report 7332202-9 (Version None)
Quarter: 2011Q1

REPORT INFORMATION
  Report Type: 
  Country: None (occurrence: None)
  Receive Date: 20110304
  Receipt Date: 20110224
  Transmission Date: 20110831
  Serious: Yes (Other)
  Sender: FDA-Public Use
  Company Number: US-ROCHE-686815

PATIENT
  Sex: Female

DRUGS (2)
  1. ACCUTANE [Suspect]
     Indication: ACNE
     Dosage: TOOK IT TWICE
     Route: 048
     Dates: end: 20060901
  2. SOTRET [Suspect]
     Route: 065

REACTIONS (8)
  - HALLUCINATION, AUDITORY [None]
  - DYSPEPSIA [None]
  - ANXIETY [None]
  - EATING DISORDER [None]
  - MENOPAUSE [None]
  - DRUG INEFFECTIVE [None]
  - HEADACHE [None]
  - POLYMENORRHOEA [None]
